FAERS Safety Report 6140026-3 (Version None)
Quarter: 2009Q2

REPORT INFORMATION
  Report Type: 
  Country: None (occurrence: None)
  Receive Date: 20090401
  Receipt Date: 20090323
  Transmission Date: 20091009
  Serious: Yes (Death, Hospitalization)
  Sender: FDA-Public Use
  Company Number: FR-WYE-G03374009

PATIENT
  Age: 53 Year
  Sex: Female

DRUGS (15)
  1. TAZOCILLINE [Interacting]
     Indication: PANCYTOPENIA
     Route: 042
     Dates: start: 20081215
  2. TAZOCILLINE [Interacting]
     Indication: PYREXIA
  3. CIPROFLOXACIN HCL [Interacting]
     Indication: PANCYTOPENIA
     Route: 042
     Dates: start: 20081215
  4. CIPROFLOXACIN HCL [Interacting]
     Indication: PYREXIA
  5. CITALOPRAM HYDROBROMIDE [Suspect]
     Dosage: 20 MG STRENGTH; DOSE UNKNOWN
     Route: 048
     Dates: start: 20081215
  6. CORTANCYL [Concomitant]
     Dosage: 20 MG STRENGTH; DOSE UNKNOWN
     Route: 048
  7. INIPOMP [Concomitant]
     Dosage: 20 MG STRENGTH; DOSE UNKNOWN
     Route: 048
  8. ACETAMINOPHEN [Suspect]
     Dosage: UNKNOWN
  9. OSTRAM [Concomitant]
     Dosage: UNKNOWN
     Route: 048
  10. VITAMIN D3 [Concomitant]
     Dosage: UNKNOWN
     Route: 048
  11. FOSAMAX [Concomitant]
     Dosage: UNKNOWN
     Route: 048
  12. GLUCONATE SODIUM [Concomitant]
     Dosage: UNKNOWN
  13. LAMICTAL [Concomitant]
     Dosage: UNKNOWN
     Route: 048
     Dates: start: 20081214
  14. SINTROM [Interacting]
     Dosage: 4 MG; FREQUENCY UNSPECIFIED
     Route: 048
  15. IMOVANE [Concomitant]
     Dosage: UNKNOWN
     Route: 048

REACTIONS (9)
  - ANTICOAGULATION DRUG LEVEL ABOVE THERAPEUTIC [None]
  - BRAIN HERNIATION [None]
  - CONVULSION [None]
  - DRUG INTERACTION [None]
  - FALL [None]
  - HEAD INJURY [None]
  - INTERNATIONAL NORMALISED RATIO INCREASED [None]
  - SUBARACHNOID HAEMORRHAGE [None]
  - SUBDURAL HAEMATOMA [None]
